FAERS Safety Report 25127571 (Version 1)
Quarter: 2025Q1

REPORT INFORMATION
  Report Type: Spontaneous
  Country: GB (occurrence: GB)
  Receive Date: 20250327
  Receipt Date: 20250327
  Transmission Date: 20250409
  Serious: Yes (Death, Other)
  Sender: AMGEN
  Company Number: None

PATIENT
  Sex: Female

DRUGS (3)
  1. IVABRADINE [Interacting]
     Active Substance: IVABRADINE
     Indication: Arrhythmia
     Route: 065
     Dates: start: 2019
  2. PAROXETINE HYDROCHLORIDE [Interacting]
     Active Substance: PAROXETINE HYDROCHLORIDE
     Indication: Product used for unknown indication
     Route: 065
  3. ELAVIL [Interacting]
     Active Substance: AMITRIPTYLINE HYDROCHLORIDE
     Indication: Product used for unknown indication
     Route: 065

REACTIONS (4)
  - Sudden cardiac death [Fatal]
  - Arrhythmia [Fatal]
  - Sleep apnoea syndrome [Fatal]
  - Drug interaction [Fatal]
